FAERS Safety Report 10952896 (Version 1)
Quarter: 2015Q1

REPORT INFORMATION
  Report Type: Spontaneous
  Country: US (occurrence: None)
  Receive Date: 20150324
  Receipt Date: 20150324
  Transmission Date: 20150721
  Serious: Yes (Hospitalization)
  Sender: FDA-Public Use
  Company Number: None

PATIENT
  Age: 89 Year
  Sex: Male
  Weight: 84.82 kg

DRUGS (1)
  1. XTANDI [Suspect]
     Active Substance: ENZALUTAMIDE
     Indication: BONE CANCER
     Dosage: MOUTH 4 AT ONCE
     Route: 048
     Dates: start: 20150130, end: 20150202

REACTIONS (14)
  - Bone pain [None]
  - Myalgia [None]
  - Dizziness [None]
  - Muscular weakness [None]
  - Headache [None]
  - Chills [None]
  - Feeling hot [None]
  - Insomnia [None]
  - Arthralgia [None]
  - Peripheral swelling [None]
  - Hot flush [None]
  - Back pain [None]
  - Dysphagia [None]
  - Dyspnoea [None]

NARRATIVE: CASE EVENT DATE: 20150202
